FAERS Safety Report 12067142 (Version 1)
Quarter: 2016Q1

REPORT INFORMATION
  Report Type: Spontaneous
  Country: US (occurrence: US)
  Receive Date: 20160210
  Receipt Date: 20160210
  Transmission Date: 20160526
  Serious: No
  Sender: FDA-Public Use
  Company Number: US-JNJFOC-20151225438

PATIENT
  Sex: Female

DRUGS (1)
  1. TERAZOL 7 [Suspect]
     Active Substance: TERCONAZOLE
     Indication: FUNGAL INFECTION
     Route: 067

REACTIONS (3)
  - Drug ineffective [Unknown]
  - Application site pain [Unknown]
  - Drug dose omission [Unknown]

NARRATIVE: CASE EVENT DATE: 20151230
